APPROVED DRUG PRODUCT: GENTAMICIN SULFATE
Active Ingredient: GENTAMICIN SULFATE
Strength: EQ 0.1% BASE
Dosage Form/Route: OINTMENT;TOPICAL
Application: A062533 | Product #001 | TE Code: AT
Applicant: FOUGERA PHARMACEUTICALS INC
Approved: Oct 5, 1984 | RLD: No | RS: No | Type: RX